FAERS Safety Report 12763654 (Version 1)
Quarter: 2016Q3

REPORT INFORMATION
  Report Type: Spontaneous
  Country: DE (occurrence: DE)
  Receive Date: 20160920
  Receipt Date: 20160920
  Transmission Date: 20161109
  Serious: Yes (Other)
  Sender: FDA-Public Use
  Company Number: DE-BAYER-2016-134476

PATIENT
  Age: 16 Year
  Sex: Male

DRUGS (12)
  1. KOGENATE [Suspect]
     Active Substance: ANTIHEMOPHILIC FACTOR, HUMAN RECOMBINANT
     Dosage: 1000 IU, UNK
     Route: 040
     Dates: start: 20111028, end: 20111028
  2. KOGENATE [Suspect]
     Active Substance: ANTIHEMOPHILIC FACTOR, HUMAN RECOMBINANT
     Dosage: 2X1000IU
     Route: 040
     Dates: start: 20120731, end: 20120731
  3. KOGENATE [Suspect]
     Active Substance: ANTIHEMOPHILIC FACTOR, HUMAN RECOMBINANT
     Dosage: 2X1000IU
     Route: 040
     Dates: start: 20150412, end: 20150412
  4. KOGENATE [Suspect]
     Active Substance: ANTIHEMOPHILIC FACTOR, HUMAN RECOMBINANT
     Dosage: 2X1000IU
     Route: 040
     Dates: start: 20120731, end: 20120731
  5. KOVALTRY [Concomitant]
     Active Substance: ANTIHEMOPHILIC FACTOR, HUMAN RECOMBINANT
     Dosage: 2X85000IU
     Dates: start: 20160629
  6. KOGENATE [Suspect]
     Active Substance: ANTIHEMOPHILIC FACTOR, HUMAN RECOMBINANT
     Dosage: 2X1000IU
     Route: 040
     Dates: start: 20150413, end: 20150413
  7. KOGENATE [Suspect]
     Active Substance: ANTIHEMOPHILIC FACTOR, HUMAN RECOMBINANT
     Dosage: 2X1000IU
     Route: 040
     Dates: start: 20150413, end: 20150413
  8. KOGENATE [Suspect]
     Active Substance: ANTIHEMOPHILIC FACTOR, HUMAN RECOMBINANT
     Dosage: 4000IU
     Route: 040
     Dates: start: 20160628, end: 20160628
  9. KOGENATE [Suspect]
     Active Substance: ANTIHEMOPHILIC FACTOR, HUMAN RECOMBINANT
     Dosage: 1000 IU, UNK
     Route: 040
     Dates: start: 20080107, end: 20080107
  10. KOVALTRY [Concomitant]
     Active Substance: ANTIHEMOPHILIC FACTOR, HUMAN RECOMBINANT
     Dosage: 2X85000IU
     Dates: start: 20160629
  11. KOGENATE [Suspect]
     Active Substance: ANTIHEMOPHILIC FACTOR, HUMAN RECOMBINANT
     Dosage: 2X1000IU
     Route: 040
     Dates: start: 20150412, end: 20150412
  12. KOGENATE [Suspect]
     Active Substance: ANTIHEMOPHILIC FACTOR, HUMAN RECOMBINANT
     Dosage: 4000IU
     Route: 040
     Dates: start: 20160630, end: 20160630

REACTIONS (3)
  - Therapy non-responder [None]
  - Renal haemorrhage [None]
  - Anti factor VIII antibody positive [Unknown]

NARRATIVE: CASE EVENT DATE: 2016
